FAERS Safety Report 7037352-2 (Version None)
Quarter: 2010Q4

REPORT INFORMATION
  Report Type: 
  Country: None (occurrence: None)
  Receive Date: 20101011
  Receipt Date: 20100929
  Transmission Date: 20110411
  Serious: Yes (Other)
  Sender: FDA-Public Use
  Company Number: JP-PFIZER INC-2010123803

PATIENT
  Age: 85 Year
  Sex: Female

DRUGS (2)
  1. AZULFIDINE [Suspect]
     Dosage: 500 MG, PER DAY
     Route: 048
  2. AZULFIDINE [Suspect]
     Dosage: 1000 MG, PER DAY
     Route: 048

REACTIONS (3)
  - ANGIOEDEMA [None]
  - DERMATITIS EXFOLIATIVE [None]
  - PRURITUS GENERALISED [None]
